FAERS Safety Report 7586034-7 (Version None)
Quarter: 2011Q2

REPORT INFORMATION
  Report Type: 
  Country: None (occurrence: None)
  Receive Date: 20110624
  Receipt Date: 20110614
  Transmission Date: 20111010
  Serious: Yes (Other)
  Sender: FDA-Public Use
  Company Number: 2011SP028169

PATIENT
  Age: 51 Year
  Sex: Male
  Weight: 71 kg

DRUGS (9)
  1. BOCEPREVIR (SCH-503034) [Suspect]
     Indication: HEPATITIS C
     Dosage: 800 MG;TID
     Dates: start: 20110321
  2. DUSPATALIN [Concomitant]
  3. PEG-INTRON [Suspect]
     Indication: HEPATITIS C
  4. RIBAVIRIN [Suspect]
     Indication: HEPATITIS C
  5. NEORAL [Concomitant]
  6. CELLCEPT [Concomitant]
  7. EUPRESSYL [Concomitant]
  8. BEDELIX [Concomitant]
  9. NIFEDIPINE [Concomitant]

REACTIONS (15)
  - FLATULENCE [None]
  - OEDEMA PERIPHERAL [None]
  - DYSPNOEA EXERTIONAL [None]
  - LEUKOPENIA [None]
  - ASPARTATE AMINOTRANSFERASE INCREASED [None]
  - BLOOD ALKALINE PHOSPHATASE INCREASED [None]
  - ABDOMINAL PAIN [None]
  - HYPOTENSION [None]
  - ANAEMIA [None]
  - BLOOD CREATININE INCREASED [None]
  - BACK PAIN [None]
  - MYALGIA [None]
  - THROMBOCYTOPENIA [None]
  - GAMMA-GLUTAMYLTRANSFERASE INCREASED [None]
  - ASTHENIA [None]
